FAERS Safety Report 6975229-9 (Version None)
Quarter: 2010Q3

REPORT INFORMATION
  Report Type: 
  Country: None (occurrence: None)
  Receive Date: 20100910
  Receipt Date: 20090218
  Transmission Date: 20110219
  Serious: No
  Sender: FDA-Public Use
  Company Number: US-WYE-H08279809

PATIENT
  Age: 79 Year
  Sex: Female
  Weight: 77.18 kg

DRUGS (3)
  1. PRISTIQ [Suspect]
     Indication: DEPRESSION
     Dosage: 50 MG 1 TIME PER 1 DAY (CUTTING TABLETS IN HALF AS PER HCP BECAUSE SHE CAN NOT SWALLOW THEM WHOLE)
     Route: 048
     Dates: start: 20090201
  2. ELAVIL [Concomitant]
  3. PROZAC [Concomitant]

REACTIONS (3)
  - ASTHENIA [None]
  - DRUG EFFECT DECREASED [None]
  - FATIGUE [None]
